FAERS Safety Report 7553713-7 (Version None)
Quarter: 2011Q2

REPORT INFORMATION
  Report Type: 
  Country: None (occurrence: None)
  Receive Date: 20110614
  Receipt Date: 20110614
  Transmission Date: 20111010
  Serious: Yes (Hospitalization, Disabling)
  Sender: FDA-Public Use
  Company Number: None

PATIENT
  Age: 48 Year
  Sex: Male
  Weight: 129.2752 kg

DRUGS (1)
  1. SIMVASTATIN [Suspect]

REACTIONS (5)
  - ASTHENIA [None]
  - ANXIETY [None]
  - DEPRESSION [None]
  - CHEST PAIN [None]
  - DYSPNOEA [None]
